FAERS Safety Report 9522846 (Version 2)
Quarter: 2013Q4

REPORT INFORMATION
  Report Type: Spontaneous
  Country: US (occurrence: US)
  Receive Date: 20130913
  Receipt Date: 20131004
  Transmission Date: 20140711
  Serious: Yes (Other)
  Sender: FDA-Public Use
  Company Number: US-TEVA-432173USA

PATIENT
  Age: 35 Year
  Sex: Female
  Weight: 57.66 kg

DRUGS (3)
  1. PARAGARD 380A [Suspect]
     Indication: CONTRACEPTION
     Route: 015
     Dates: start: 20130219, end: 20130905
  2. CLEOCIN [Concomitant]
     Indication: VAGINITIS BACTERIAL
  3. DIFLUCAN [Concomitant]
     Indication: FUNGAL INFECTION

REACTIONS (3)
  - Device dislocation [Recovered/Resolved]
  - Sensation of foreign body [Recovered/Resolved]
  - Pelvic pain [Recovered/Resolved]
